FAERS Safety Report 13265894 (Version 2)
Quarter: 2017Q2

REPORT INFORMATION
  Report Type: Report from Study
  Country: US (occurrence: US)
  Receive Date: 20170223
  Receipt Date: 20170428
  Transmission Date: 20170830
  Serious: Yes (Hospitalization)
  Sender: FDA-Public Use
  Company Number: PHHO2013US001871

PATIENT
  Age: 46 Year
  Sex: Female
  Weight: 67.27 kg

DRUGS (2)
  1. BEVACIZUMAB [Suspect]
     Active Substance: BEVACIZUMAB
     Indication: OVARIAN EPITHELIAL CANCER
     Dosage: 10 MG/KG, (DAY 1 AND DAY 15)
     Route: 042
     Dates: start: 20120807
  2. AFINITOR [Suspect]
     Active Substance: EVEROLIMUS
     Indication: OVARIAN EPITHELIAL CANCER
     Dosage: 10 MG, QD
     Route: 048
     Dates: start: 20120807, end: 20130125

REACTIONS (6)
  - Dyspnoea [Recovered/Resolved]
  - Hypoxia [Recovered/Resolved]
  - Dizziness [Recovered/Resolved]
  - Fatigue [Recovered/Resolved]
  - Embolism [Recovered/Resolved]
  - Muscular weakness [Recovered/Resolved]

NARRATIVE: CASE EVENT DATE: 20130128
